FAERS Safety Report 6228438-0 (Version None)
Quarter: 2009Q2

REPORT INFORMATION
  Report Type: 
  Country: None (occurrence: None)
  Receive Date: 20090612
  Receipt Date: 20090603
  Transmission Date: 20091009
  Serious: Yes (Disabling)
  Sender: FDA-Public Use
  Company Number: US-ELI_LILLY_AND_COMPANY-US200906000872

PATIENT
  Sex: Female

DRUGS (7)
  1. FORTEO [Suspect]
     Dosage: UNK, UNK
     Dates: start: 20060101
  2. FORTEO [Suspect]
     Dates: start: 20090513
  3. CALCIUM WITH VITAMIN D /00944201/ [Concomitant]
  4. METFORMIN HYDROCHLORIDE [Concomitant]
     Indication: DIABETES MELLITUS
  5. NEXIUM [Concomitant]
  6. EFFEXOR XR [Concomitant]
  7. BENICAR [Concomitant]
     Indication: BLOOD PRESSURE

REACTIONS (2)
  - BLOOD CALCIUM INCREASED [None]
  - DISABILITY [None]
